FAERS Safety Report 26173841 (Version 1)
Quarter: 2025Q4

REPORT INFORMATION
  Report Type: Spontaneous
  Country: JP (occurrence: JP)
  Receive Date: 20251218
  Receipt Date: 20251218
  Transmission Date: 20260117
  Serious: Yes (Other)
  Sender: AMGEN
  Company Number: JP-AMGEN-JPNSP2025245385

PATIENT
  Age: 5 Decade
  Sex: Female

DRUGS (3)
  1. BEVACIZUMAB [Suspect]
     Active Substance: BEVACIZUMAB
     Indication: Ovarian neoplasm
     Dosage: UNK
     Route: 065
  2. LENVATINIB [Concomitant]
     Active Substance: LENVATINIB
     Dosage: UNK
  3. LENVATINIB [Concomitant]
     Active Substance: LENVATINIB
     Dosage: UNK

REACTIONS (4)
  - Metastases to liver [Unknown]
  - Peritonitis [Unknown]
  - Myocardial infarction [Unknown]
  - Drug ineffective [Unknown]
